FAERS Safety Report 5207489-9 (Version None)
Quarter: 2007Q1

REPORT INFORMATION
  Report Type: 
  Country: None (occurrence: None)
  Receive Date: 20070112
  Receipt Date: 20070105
  Transmission Date: 20070707
  Serious: Yes (Hospitalization)
  Sender: FDA-Public Use
  Company Number: DE-ABBOTT-06P-062-0341403-00

PATIENT
  Sex: Male

DRUGS (10)
  1. KALETRA [Interacting]
     Indication: HIV INFECTION
     Route: 048
  2. CARBAMAZEPINE [Interacting]
     Indication: CONVULSION PROPHYLAXIS
     Route: 048
     Dates: start: 20060518, end: 20060518
  3. CARBAMAZEPINE [Interacting]
     Route: 048
     Dates: start: 20060515, end: 20060515
  4. CARBAMAZEPINE [Interacting]
     Route: 048
     Dates: start: 20060516, end: 20060517
  5. TEGRETOL [Interacting]
     Indication: CONVULSION PROPHYLAXIS
     Route: 048
     Dates: start: 20060515, end: 20060518
  6. FLUNITRAZEPAM [Suspect]
     Indication: DRUG USE FOR UNKNOWN INDICATION
     Route: 048
     Dates: end: 20060515
  7. TRUVADA [Concomitant]
     Indication: HIV INFECTION
     Route: 048
  8. DIAZEPAM [Concomitant]
     Indication: DRUG DEPENDENCE
     Route: 048
     Dates: start: 20060516, end: 20060518
  9. METHADONE HYDROCHLORIDE [Concomitant]
     Indication: DRUG DEPENDENCE
     Route: 048
     Dates: start: 19920101
  10. CARBAMAZEPINE [Concomitant]
     Indication: CONVULSION PROPHYLAXIS
     Route: 048
     Dates: start: 20060523

REACTIONS (9)
  - ASTHENIA [None]
  - COORDINATION ABNORMAL [None]
  - DIZZINESS [None]
  - DRUG ABUSER [None]
  - DRUG INTERACTION [None]
  - DRUG LEVEL INCREASED [None]
  - GENERAL PHYSICAL HEALTH DETERIORATION [None]
  - LOSS OF CONSCIOUSNESS [None]
  - NYSTAGMUS [None]
